FAERS Safety Report 13267609 (Version 3)
Quarter: 2017Q2

REPORT INFORMATION
  Report Type: Spontaneous
  Country: US (occurrence: US)
  Receive Date: 20170224
  Receipt Date: 20170418
  Transmission Date: 20170830
  Serious: No
  Sender: FDA-Public Use
  Company Number: US-PFIZER INC-2017081250

PATIENT
  Age: 54 Year
  Sex: Male
  Weight: 124.74 kg

DRUGS (11)
  1. LIDOCAINE. [Concomitant]
     Active Substance: LIDOCAINE
     Indication: ORAL DISCOMFORT
     Dosage: 4 OR 5 TIMES A DAY WHEN BAD,WHEN NOT BAD, 2 TIMES A DAY AND USES A 1/4 OF TEASPOON, PLACES ON TONGUE
     Dates: start: 2016
  2. LYRICA [Suspect]
     Active Substance: PREGABALIN
     Indication: MYALGIA
     Dosage: 25 MG, 2X/DAY
     Route: 048
     Dates: start: 20170130
  3. LYRICA [Suspect]
     Active Substance: PREGABALIN
     Indication: FIBROMYALGIA
  4. MORPHINE EXTENDED RELEASE [Concomitant]
     Active Substance: MORPHINE
     Indication: SPINAL CORD DISORDER
     Dosage: 60 MG, 2X/DAY, 12HR TIME RELEASE PILLS
     Route: 048
  5. CHLORASEPTIC SORE THROAT [Concomitant]
     Active Substance: PHENOL
     Indication: ORAL DISCOMFORT
     Dosage: AS NEEDED
  6. MORPHINE EXTENDED RELEASE [Concomitant]
     Active Substance: MORPHINE
     Indication: SPINAL COLUMN STENOSIS
  7. HUMIRA [Concomitant]
     Active Substance: ADALIMUMAB
     Indication: ARTHRITIS
     Dosage: 1 INJECTION EVERY WEEK, IN HIS THIGH
  8. NYSTATIN. [Concomitant]
     Active Substance: NYSTATIN
     Indication: FUNGAL INFECTION
     Dosage: UNK
     Dates: start: 201702
  9. TRAMADOL. [Concomitant]
     Active Substance: TRAMADOL
     Indication: SPINAL CORD DISORDER
     Dosage: 200 MG, 1X/DAY, 24 HR EXTENDED RELEASE
     Route: 048
  10. TRAMADOL. [Concomitant]
     Active Substance: TRAMADOL
     Indication: ARTHRITIS
  11. TRAMADOL. [Concomitant]
     Active Substance: TRAMADOL
     Indication: BACK PAIN

REACTIONS (1)
  - Drug effect incomplete [Unknown]

NARRATIVE: CASE EVENT DATE: 201702
